FAERS Safety Report 15778984 (Version 1)
Quarter: 2019Q1

REPORT INFORMATION
  Report Type: Spontaneous
  Country: US (occurrence: US)
  Receive Date: 20190101
  Receipt Date: 20190101
  Transmission Date: 20190417
  Serious: No
  Sender: FDA-Public Use
  Company Number: US-ACCORD-063287

PATIENT
  Age: 68 Year
  Sex: Female
  Weight: 52.16 kg

DRUGS (3)
  1. SERTRALINE ACCORD [Suspect]
     Active Substance: SERTRALINE HYDROCHLORIDE
     Indication: DEPRESSION
     Dosage: DOSE/ STRENGTH: 100 MG??FREQUENCY: 1 AND HALF TABLETS DAILY
     Route: 048
     Dates: start: 201712
  2. TOFRANIL [Concomitant]
     Active Substance: IMIPRAMINE HYDROCHLORIDE
     Dosage: STRENGTH: 150 MG
  3. CLONAZEPAM. [Concomitant]
     Active Substance: CLONAZEPAM
     Dosage: STRENGTH: 0.5 MG

REACTIONS (2)
  - Skin exfoliation [Unknown]
  - Product substitution issue [Unknown]

NARRATIVE: CASE EVENT DATE: 201712
